FAERS Safety Report 12262420 (Version 1)
Quarter: 2016Q2

REPORT INFORMATION
  Report Type: Spontaneous
  Country: US (occurrence: None)
  Receive Date: 20160412
  Receipt Date: 20160412
  Transmission Date: 20160815
  Serious: No
  Sender: FDA-Public Use
  Company Number: None

PATIENT
  Sex: Female

DRUGS (1)
  1. AMICAR [Suspect]
     Active Substance: AMINOCAPROIC ACID
     Indication: VON WILLEBRAND^S DISEASE
     Route: 048
     Dates: start: 20130923

REACTIONS (2)
  - Nausea [None]
  - Dizziness [None]
